FAERS Safety Report 7728577-9 (Version None)
Quarter: 2011Q3

REPORT INFORMATION
  Report Type: 
  Country: None (occurrence: None)
  Receive Date: 20110831
  Receipt Date: 20110831
  Transmission Date: 20111222
  Serious: Yes (Life-Threatening, Hospitalization, Disabling, Other)
  Sender: FDA-Public Use
  Company Number: None

PATIENT
  Age: 26 Year
  Sex: Female
  Weight: 72.1219 kg

DRUGS (2)
  1. PROLIXIN [Suspect]
     Indication: MENTAL DISORDER
     Dosage: REMOVED - TRIAL DOSAGE'S EXP ETC.
  2. SULFER WATER [Concomitant]

REACTIONS (4)
  - SCHIZOPHRENIA [None]
  - VISUAL IMPAIRMENT [None]
  - TOOTH DISORDER [None]
  - TINNITUS [None]
